FAERS Safety Report 18332730 (Version 22)
Quarter: 2021Q4

REPORT INFORMATION
  Report Type: Spontaneous
  Country: CA (occurrence: CA)
  Receive Date: 20200930
  Receipt Date: 20211025
  Transmission Date: 20220303
  Serious: Yes (Hospitalization, Other)
  Sender: FDA-Public Use
  Company Number: CA-CELLTRION INC.-2020CA027153

PATIENT

DRUGS (14)
  1. INFLECTRA [Suspect]
     Active Substance: INFLIXIMAB-DYYB
     Indication: Crohn^s disease
     Dosage: 400 MG WEEKS 0, 2, 6, THEN Q8 WKS
     Route: 042
     Dates: start: 20200914, end: 20200914
  2. INFLECTRA [Suspect]
     Active Substance: INFLIXIMAB-DYYB
     Dosage: 400MG AT 0, 2, 6, THEN Q8WKS
     Route: 042
     Dates: start: 20200914, end: 20201009
  3. INFLECTRA [Suspect]
     Active Substance: INFLIXIMAB-DYYB
     Dosage: 400 MG WEEKS 0, 2, 6, THEN Q8WKS
     Route: 042
     Dates: start: 20201009, end: 20201009
  4. INFLECTRA [Suspect]
     Active Substance: INFLIXIMAB-DYYB
     Dosage: 400 MG WEEKS 0, 2, 6, THEN Q8WKS
     Route: 042
     Dates: start: 20201029, end: 20201029
  5. INFLECTRA [Suspect]
     Active Substance: INFLIXIMAB-DYYB
     Dosage: 400MG  AT 0, 2, 6 WEEKS, THEN Q8WKS/ON HOLD RE-INDUCTION Q 0, 2, 6 WKS, THEN Q8WKS
     Route: 042
     Dates: start: 20210428
  6. INFLECTRA [Suspect]
     Active Substance: INFLIXIMAB-DYYB
     Dosage: 400 MG AT 0, 2, 6 WEEKS, THEN Q8WKS
     Route: 042
     Dates: start: 20210512
  7. INFLECTRA [Suspect]
     Active Substance: INFLIXIMAB-DYYB
     Dosage: 400 MG  AT 0, 2, 6 WEEKS, THEN Q8WKS
     Route: 042
     Dates: start: 20210609
  8. INFLECTRA [Suspect]
     Active Substance: INFLIXIMAB-DYYB
     Dosage: 400 MG AT 0, 2, 6 WEEKS, THEN Q8WKS
     Route: 042
     Dates: start: 20210804
  9. CALCIUM\VITAMIN D [Concomitant]
     Active Substance: CALCIUM\VITAMIN D
     Dosage: 1 DF, UNKNOWN
     Route: 065
  10. FOLIC ACID [Concomitant]
     Active Substance: FOLIC ACID
     Dosage: 1 DF, DOSAGE INFORMATION NOT AVAILABLE
     Route: 065
  11. IRON [Concomitant]
     Active Substance: IRON
     Dosage: 1 DF, UNK
     Route: 048
  12. LOPERAMIDE [Concomitant]
     Active Substance: LOPERAMIDE
     Dosage: 2 MG,UNK
     Route: 065
     Dates: start: 202008
  13. METHOTREXATE SODIUM [Concomitant]
     Active Substance: METHOTREXATE SODIUM
     Dosage: 1 DF,UNK
     Route: 030
  14. PREDNISONE [Concomitant]
     Active Substance: PREDNISONE
     Dosage: 1 DF, UNK
     Route: 065
     Dates: start: 20200610

REACTIONS (18)
  - Non-cardiac chest pain [Unknown]
  - Inflammatory bowel disease [Not Recovered/Not Resolved]
  - Chest pain [Not Recovered/Not Resolved]
  - Drug level decreased [Unknown]
  - Body temperature decreased [Unknown]
  - Pruritus [Not Recovered/Not Resolved]
  - Blood pressure increased [Unknown]
  - Anal fissure [Unknown]
  - Weight decreased [Unknown]
  - Dry skin [Unknown]
  - Rash [Not Recovered/Not Resolved]
  - Infusion related reaction [Unknown]
  - Condition aggravated [Not Recovered/Not Resolved]
  - Blister [Not Recovered/Not Resolved]
  - Off label use [Unknown]
  - Intentional product use issue [Unknown]
  - Off label use [Unknown]
  - Inappropriate schedule of product administration [Unknown]

NARRATIVE: CASE EVENT DATE: 20200101
